FAERS Safety Report 8577143-4 (Version None)
Quarter: 2012Q3

REPORT INFORMATION
  Report Type: 
  Country: None (occurrence: None)
  Receive Date: 20120807
  Receipt Date: 20120801
  Transmission Date: 20120928
  Serious: Yes (Hospitalization)
  Sender: FDA-Public Use
  Company Number: GB-TEVA-351958ISR

PATIENT
  Age: 8 Year
  Sex: Female
  Weight: 23.4 kg

DRUGS (7)
  1. CIPROFLOXACIN [Suspect]
     Indication: CYSTIC FIBROSIS
     Route: 048
     Dates: start: 20120703, end: 20120710
  2. IBUPROFEN [Concomitant]
     Dosage: 400 MILLIGRAM DAILY;
     Route: 048
  3. LANSOPRAZOLE [Concomitant]
     Indication: CYSTIC FIBROSIS
     Route: 048
     Dates: start: 20120601
  4. PREDNISOLONE [Concomitant]
     Dosage: 40 MILLIGRAM DAILY;
  5. CREON [Concomitant]
     Indication: CYSTIC FIBROSIS
     Dosage: DATE STARTED: AT BIRTH AND IS CONTINUING.
     Route: 048
  6. VITAMIN E [Concomitant]
     Indication: CYSTIC FIBROSIS
     Route: 048
  7. VITAMINS A AND D [Concomitant]
     Indication: CYSTIC FIBROSIS
     Route: 048

REACTIONS (1)
  - RENAL IMPAIRMENT [None]
